FAERS Safety Report 7818293 (Version 3)
Quarter: 2013Q4

REPORT INFORMATION
  Report Type: Report from Study
  Country: CZ (occurrence: CZ)
  Receive Date: 20110218
  Receipt Date: 20131223
  Transmission Date: 20140711
  Serious: Yes (Death)
  Sender: FDA-Public Use
  Company Number: CZ-CELGENEUS-217-C5013-11022006

PATIENT
  Age: 78 Year
  Sex: Male
  Weight: 77 kg

DRUGS (4)
  1. CC-5013 [Suspect]
     Indication: PLASMA CELL MYELOMA
     Dosage: 10 MILLIGRAM
     Route: 048
     Dates: start: 20071206, end: 20080903
  2. MELPHALAN [Suspect]
     Indication: PLASMA CELL MYELOMA
     Dosage: 10 MILLIGRAM
     Route: 048
     Dates: start: 20071206, end: 20080817
  3. PREDNISONE [Suspect]
     Indication: PLASMA CELL MYELOMA
     Dosage: 148 MILLIGRAM
     Route: 048
     Dates: start: 20071206, end: 20080817
  4. PLACEBO FOR CC-5013 [Suspect]
     Indication: PLASMA CELL MYELOMA
     Dates: end: 20080903

REACTIONS (1)
  - Myelodysplastic syndrome [Fatal]
